FAERS Safety Report 16403720 (Version 1)
Quarter: 2019Q3

REPORT INFORMATION
  Report Type: Spontaneous
  Country: US (occurrence: US)
  Receive Date: 20190606
  Receipt Date: 20190606
  Transmission Date: 20191004
  Serious: No
  Sender: FDA-Public Use
  Company Number: None

PATIENT
  Age: 33 Year
  Sex: Male
  Weight: 81 kg

DRUGS (1)
  1. DEXTROAMPHET SACCHARAT, AMPHET ASPARTATE, DEXTROAMPHET SULFATE AND AMPHET SULFAT [Suspect]
     Active Substance: AMPHETAMINE ASPARTATE\AMPHETAMINE SULFATE\DEXTROAMPHETAMINE SACCHARATE\DEXTROAMPHETAMINE SULFATE
     Indication: ATTENTION DEFICIT/HYPERACTIVITY DISORDER
     Dosage: ?          QUANTITY:112 TABLET(S); FREQUENCY: 4 TIMES A DAY?ONGOING: Y?
     Route: 048
     Dates: start: 20190523, end: 20190605

REACTIONS (8)
  - Headache [None]
  - Blood pressure increased [None]
  - Product substitution issue [None]
  - Drug ineffective [None]
  - Disturbance in attention [None]
  - Therapeutic response changed [None]
  - Product availability issue [None]
  - Anxiety [None]

NARRATIVE: CASE EVENT DATE: 20190605
